FAERS Safety Report 5798611-4 (Version None)
Quarter: 2008Q3

REPORT INFORMATION
  Report Type: 
  Country: None (occurrence: None)
  Receive Date: 20080702
  Receipt Date: 20080625
  Transmission Date: 20090109
  Serious: Yes (Death)
  Sender: FDA-Public Use
  Company Number: BE-ABBOTT-08P-013-0459858-00

PATIENT
  Sex: Male
  Weight: 75 kg

DRUGS (3)
  1. LUPRON DEPOT [Suspect]
     Indication: PROSTATE CANCER
     Dates: start: 20060508
  2. GEMCITABINE [Concomitant]
     Indication: DRUG USE FOR UNKNOWN INDICATION
     Dates: start: 20071001
  3. CISPLATIN [Concomitant]
     Indication: DRUG USE FOR UNKNOWN INDICATION
     Dates: start: 20071001

REACTIONS (3)
  - ATRIAL FIBRILLATION [None]
  - GENERAL PHYSICAL HEALTH DETERIORATION [None]
  - PROSTATE CANCER [None]
